FAERS Safety Report 18488046 (Version 2)
Quarter: 2020Q4

REPORT INFORMATION
  Report Type: Spontaneous
  Country: US (occurrence: US)
  Receive Date: 20201111
  Receipt Date: 20201116
  Transmission Date: 20210114
  Serious: Yes (Death, Hospitalization)
  Sender: FDA-Public Use
  Company Number: US-ROCHE-2710584

PATIENT
  Sex: Male
  Weight: 111.23 kg

DRUGS (1)
  1. ALECENSA [Suspect]
     Active Substance: ALECTINIB HYDROCHLORIDE
     Indication: PANCREATIC CARCINOMA
     Dosage: ONGOING: NO
     Route: 048
     Dates: start: 20200504, end: 2020

REACTIONS (7)
  - Respiratory failure [Fatal]
  - Skin discolouration [Unknown]
  - Swelling [Unknown]
  - Peripheral swelling [Unknown]
  - Respiratory disorder [Unknown]
  - Swelling of eyelid [Unknown]
  - Lip discolouration [Unknown]
